FAERS Safety Report 12376500 (Version 1)
Quarter: 2016Q2

REPORT INFORMATION
  Report Type: Spontaneous
  Country: US (occurrence: US)
  Receive Date: 20160517
  Receipt Date: 20160517
  Transmission Date: 20160815
  Serious: No
  Sender: FDA-Public Use
  Company Number: US-RELYPSA-RLY2016000127

PATIENT

DRUGS (1)
  1. VELTASSA [Suspect]
     Active Substance: PATIROMER
     Indication: HYPERKALAEMIA
     Dosage: 8.4 G, ONCE
     Route: 048
     Dates: start: 20160227, end: 20160228

REACTIONS (9)
  - Pollakiuria [Not Recovered/Not Resolved]
  - Insomnia [Not Recovered/Not Resolved]
  - Heart rate increased [Not Recovered/Not Resolved]
  - Diarrhoea [Recovered/Resolved]
  - Headache [Not Recovered/Not Resolved]
  - Nausea [Recovered/Resolved]
  - Dyspnoea [Not Recovered/Not Resolved]
  - Abdominal discomfort [Recovered/Resolved]
  - Blood pressure increased [Not Recovered/Not Resolved]

NARRATIVE: CASE EVENT DATE: 20160227
